FAERS Safety Report 14221887 (Version 2)
Quarter: 2018Q1

REPORT INFORMATION
  Report Type: Spontaneous
  Country: US (occurrence: US)
  Receive Date: 20171124
  Receipt Date: 20180114
  Transmission Date: 20180508
  Serious: No
  Sender: FDA-Public Use
  Company Number: US-009507513-1711USA003345

PATIENT
  Age: 19 Year
  Sex: Female
  Weight: 158.6 kg

DRUGS (4)
  1. SERTRALINE HYDROCHLORIDE. [Concomitant]
     Active Substance: SERTRALINE HYDROCHLORIDE
     Indication: DEPRESSION
     Dosage: 100 MG, UNK
     Route: 048
  2. NAPROXEN. [Concomitant]
     Active Substance: NAPROXEN
     Indication: HEADACHE
     Route: 048
  3. ASPIRIN. [Concomitant]
     Active Substance: ASPIRIN
     Indication: CEREBRAL VASOCONSTRICTION
     Route: 048
  4. NEXPLANON [Suspect]
     Active Substance: ETONOGESTREL
     Dosage: 1 DF, UNK
     Route: 059
     Dates: start: 201608, end: 20171106

REACTIONS (17)
  - Skin irritation [Unknown]
  - Amenorrhoea [Unknown]
  - Product quality issue [Unknown]
  - Oedema [Recovered/Resolved]
  - Skin infection [Recovered/Resolved]
  - Implant site mass [Unknown]
  - Complication associated with device [Recovered/Resolved]
  - Skin warm [Recovered/Resolved]
  - Device kink [Unknown]
  - Device deployment issue [Unknown]
  - Induration [Unknown]
  - Implant site mass [Recovered/Resolved]
  - Peripheral swelling [Unknown]
  - Erythema [Recovered/Resolved]
  - Complication of device removal [Recovered/Resolved]
  - Device difficult to use [Recovered/Resolved]
  - Device kink [Recovered/Resolved]

NARRATIVE: CASE EVENT DATE: 2016
